FAERS Safety Report 11616276 (Version 1)
Quarter: 2015Q4

REPORT INFORMATION
  Report Type: Spontaneous
  Country: BR (occurrence: BR)
  Receive Date: 20151009
  Receipt Date: 20151009
  Transmission Date: 20160304
  Serious: Yes (Hospitalization)
  Sender: FDA-Public Use
  Company Number: BR-PFIZER INC-2015330916

PATIENT
  Age: 60 Year
  Sex: Female
  Weight: 68 kg

DRUGS (2)
  1. LIPITOR [Suspect]
     Active Substance: ATORVASTATIN CALCIUM
     Indication: DEPRESSION
     Dosage: 1 DF, 1 TABLET A DAY
     Route: 048
     Dates: start: 2014
  2. LIPITOR [Suspect]
     Active Substance: ATORVASTATIN CALCIUM
     Indication: FIBROMYALGIA

REACTIONS (4)
  - Syncope [Unknown]
  - Product use issue [Not Recovered/Not Resolved]
  - Hearing impaired [Not Recovered/Not Resolved]
  - Dyspnoea [Unknown]
